FAERS Safety Report 24539765 (Version 2)
Quarter: 2024Q4

REPORT INFORMATION
  Report Type: Report from Study
  Country: CA (occurrence: CA)
  Receive Date: 20241023
  Receipt Date: 20241204
  Transmission Date: 20250115
  Serious: Yes (Hospitalization)
  Sender: ROCHE
  Company Number: CA-ROCHE-10000110994

PATIENT
  Sex: Male

DRUGS (1)
  1. OCREVUS [Suspect]
     Active Substance: OCRELIZUMAB
     Indication: Relapsing-remitting multiple sclerosis
     Dosage: MORE DOSAGE INFORMATION IS 300 MG AT DAY 0 AND 14, THEN 600 MG EVERY 6 MONTHS
     Route: 042
     Dates: start: 20211112

REACTIONS (8)
  - COVID-19 pneumonia [Recovered/Resolved]
  - Labyrinthitis [Recovering/Resolving]
  - Illness [Unknown]
  - Multiple sclerosis [Unknown]
  - Head discomfort [Unknown]
  - Fatigue [Unknown]
  - Hypoxia [Unknown]
  - Memory impairment [Recovered/Resolved]
